FAERS Safety Report 15896644 (Version 1)
Quarter: 2019Q1

REPORT INFORMATION
  Report Type: Report from Study
  Country: BE (occurrence: BE)
  Receive Date: 20190131
  Receipt Date: 20190131
  Transmission Date: 20190417
  Serious: Yes (Death, Hospitalization)
  Sender: FDA-Public Use
  Company Number: BE-PFIZER INC-2019042238

PATIENT
  Age: 78 Year
  Sex: Male

DRUGS (1)
  1. AMIODARONE HCL [Suspect]
     Active Substance: AMIODARONE HYDROCHLORIDE
     Dosage: UNK
     Route: 065

REACTIONS (6)
  - Abdominal pain upper [Fatal]
  - Infection [Fatal]
  - Obstruction gastric [Fatal]
  - Respiratory disorder [Fatal]
  - Lymphadenopathy [Fatal]
  - Vomiting [Fatal]

NARRATIVE: CASE EVENT DATE: 20181115
